FAERS Safety Report 5192835-5 (Version None)
Quarter: 2006Q4

REPORT INFORMATION
  Report Type: 
  Country: None (occurrence: None)
  Receive Date: 20061228
  Receipt Date: 20051123
  Transmission Date: 20070319
  Serious: No
  Sender: FDA-Public Use
  Company Number: US-GLAXOSMITHKLINE-A0584153A

PATIENT
  Age: 44 Year
  Sex: Female

DRUGS (4)
  1. FLONASE [Suspect]
     Dosage: 1SPR PER DAY
     Route: 045
     Dates: start: 20051024, end: 20051122
  2. ZYRTEC [Concomitant]
  3. SINGULAIR [Concomitant]
  4. YASMIN [Concomitant]

REACTIONS (4)
  - ANXIETY [None]
  - BLOOD PRESSURE INCREASED [None]
  - CHEST DISCOMFORT [None]
  - INSOMNIA [None]
